FAERS Safety Report 7634591-4 (Version None)
Quarter: 2011Q3

REPORT INFORMATION
  Report Type: 
  Country: None (occurrence: None)
  Receive Date: 20110725
  Receipt Date: 20110712
  Transmission Date: 20111222
  Serious: Yes (Other)
  Sender: FDA-Public Use
  Company Number: CA-GENENTECH-315450

PATIENT
  Sex: Female

DRUGS (17)
  1. AMITRIPTYLINE HCL [Concomitant]
     Indication: PRODUCT USED FOR UNKNOWN INDICATION
  2. PREVACID [Concomitant]
     Indication: PRODUCT USED FOR UNKNOWN INDICATION
  3. ZOPICLONE [Concomitant]
     Indication: PRODUCT USED FOR UNKNOWN INDICATION
  4. OXYCONTIN [Concomitant]
     Indication: PRODUCT USED FOR UNKNOWN INDICATION
  5. TOPIRAMATE [Concomitant]
     Indication: PRODUCT USED FOR UNKNOWN INDICATION
  6. OXYCODONE HCL AND ACETAMINOPHEN [Concomitant]
     Indication: PRODUCT USED FOR UNKNOWN INDICATION
  7. XOLAIR [Suspect]
     Indication: ASTHMA
     Dosage: 225 MG, Q2W
     Route: 058
     Dates: start: 20101220
  8. XOLAIR [Suspect]
     Dosage: UNK
     Dates: start: 20110308
  9. PREMARIN [Concomitant]
     Indication: PRODUCT USED FOR UNKNOWN INDICATION
  10. NOVO-CYCLOPRINE [Concomitant]
     Indication: PRODUCT USED FOR UNKNOWN INDICATION
  11. ADVAIR DISKUS 100/50 [Concomitant]
     Indication: PRODUCT USED FOR UNKNOWN INDICATION
  12. DESYREL [Concomitant]
     Indication: PRODUCT USED FOR UNKNOWN INDICATION
  13. PERINDOPRIL ERBUMINE [Concomitant]
     Indication: PRODUCT USED FOR UNKNOWN INDICATION
  14. INFLUENZA VACCINE [Concomitant]
     Indication: PRODUCT USED FOR UNKNOWN INDICATION
  15. SINGULAIR [Concomitant]
     Indication: PRODUCT USED FOR UNKNOWN INDICATION
  16. FLUTICASONE FUROATE [Concomitant]
     Indication: PRODUCT USED FOR UNKNOWN INDICATION
  17. ADVENTAN [Concomitant]
     Indication: PRODUCT USED FOR UNKNOWN INDICATION

REACTIONS (10)
  - COUGH [None]
  - LYMPHADENOPATHY [None]
  - INJECTION SITE ERYTHEMA [None]
  - HEADACHE [None]
  - SPUTUM DISCOLOURED [None]
  - LOWER RESPIRATORY TRACT INFECTION [None]
  - FEELING ABNORMAL [None]
  - PNEUMONIA [None]
  - BLOOD PRESSURE INCREASED [None]
  - NAUSEA [None]
